FAERS Safety Report 17639510 (Version 1)
Quarter: 2020Q2

REPORT INFORMATION
  Report Type: Spontaneous
  Country: GB (occurrence: GB)
  Receive Date: 20200407
  Receipt Date: 20200407
  Transmission Date: 20200713
  Serious: Yes (Hospitalization)
  Sender: FDA-Public Use
  Company Number: GB-VERTEX PHARMACEUTICALS-2020-008127

PATIENT
  Sex: Male

DRUGS (3)
  1. BRAMITOB [Concomitant]
     Active Substance: TOBRAMYCIN
  2. KALYDECO [Suspect]
     Active Substance: IVACAFTOR
     Indication: CYSTIC FIBROSIS
     Dosage: 150 MILLIGRAM, PM,  QD
     Route: 048
  3. SYMKEVI [Suspect]
     Active Substance: IVACAFTOR\TEZACAFTOR
     Indication: CYSTIC FIBROSIS
     Dosage: 100/ 150MG AM, QD
     Route: 048
     Dates: start: 2020

REACTIONS (1)
  - Lower respiratory tract congestion [Unknown]

NARRATIVE: CASE EVENT DATE: 20200324
